FAERS Safety Report 6510303-2 (Version None)
Quarter: 2009Q4

REPORT INFORMATION
  Report Type: 
  Country: None (occurrence: None)
  Receive Date: 20091222
  Receipt Date: 20090923
  Transmission Date: 20100525
  Serious: No
  Sender: FDA-Public Use
  Company Number: US-ASTRAZENECA-2009SE15180

PATIENT
  Age: 55 Year
  Sex: Female
  Weight: 77.1 kg

DRUGS (12)
  1. CRESTOR [Suspect]
     Route: 048
     Dates: start: 20080401
  2. COUMADIN [Concomitant]
  3. SPIRONOLACTONE [Concomitant]
  4. SYNTHROID [Concomitant]
  5. ASPIRIN [Concomitant]
  6. LASIX [Concomitant]
  7. POTASSIUM [Concomitant]
  8. COREG [Concomitant]
  9. CYMBALTA [Concomitant]
  10. ZETIA [Concomitant]
  11. PREVACID [Concomitant]
  12. LISINOPRIL [Concomitant]

REACTIONS (3)
  - FEELING ABNORMAL [None]
  - INTERNATIONAL NORMALISED RATIO [None]
  - MYALGIA [None]
